FAERS Safety Report 8250525-6 (Version None)
Quarter: 2012Q2

REPORT INFORMATION
  Report Type: 
  Country: None (occurrence: None)
  Receive Date: 20120402
  Receipt Date: 20120327
  Transmission Date: 20120825
  Serious: Yes (Other)
  Sender: FDA-Public Use
  Company Number: US-PFIZER INC-2012078708

PATIENT
  Sex: Female

DRUGS (1)
  1. LYRICA [Suspect]
     Dosage: UNK

REACTIONS (6)
  - PERSONALITY CHANGE [None]
  - SWELLING [None]
  - IMPULSIVE BEHAVIOUR [None]
  - ANGER [None]
  - AGGRESSION [None]
  - OEDEMA PERIPHERAL [None]
